FAERS Safety Report 5153400-9 (Version None)
Quarter: 2006Q4

REPORT INFORMATION
  Report Type: 
  Country: None (occurrence: None)
  Receive Date: 20061114
  Receipt Date: 20061107
  Transmission Date: 20070319
  Serious: Yes (Other)
  Sender: FDA-Public Use
  Company Number: TCI2006A04958

PATIENT
  Age: 47 Year
  Sex: Female

DRUGS (1)
  1. LEUPROLIDE ACETATE [Suspect]
     Indication: BREAST OPERATION
     Dosage: UNK, (1 IN 28 D); SUBCUTANEOUS
     Route: 058
     Dates: start: 20050501, end: 20060801

REACTIONS (2)
  - ENDOMETRIOSIS [None]
  - OVARIAN CANCER [None]
